FAERS Safety Report 11883492 (Version 35)
Quarter: 2019Q3

REPORT INFORMATION
  Report Type: Report from Study
  Country: CA (occurrence: CA)
  Receive Date: 20151231
  Receipt Date: 20190917
  Transmission Date: 20191004
  Serious: Yes (Hospitalization, Other)
  Sender: FDA-Public Use
  Company Number: PHHY2015CA170557

PATIENT
  Age: 70 Year
  Sex: Male

DRUGS (3)
  1. SANDOSTATIN LAR DEPOT [Suspect]
     Active Substance: OCTREOTIDE ACETATE
     Indication: CARCINOID TUMOUR
     Dosage: 20 MG, QMO (EVERY 4 WEEKS)
     Route: 030
     Dates: start: 20160105
  2. SANDOSTATIN [Suspect]
     Active Substance: OCTREOTIDE ACETATE
     Indication: CARCINOID TUMOUR
     Dosage: TID (FOR 03 WEEKS)
     Route: 058
     Dates: start: 2015, end: 2015
  3. AMLODIPINE [Concomitant]
     Active Substance: AMLODIPINE BESYLATE
     Indication: PRODUCT USED FOR UNKNOWN INDICATION
     Dosage: 10 MG, QD
     Route: 048
     Dates: start: 20161109

REACTIONS (13)
  - Blood potassium decreased [Unknown]
  - Cystitis [Unknown]
  - Benign prostatic hyperplasia [Unknown]
  - Blood urine present [Not Recovered/Not Resolved]
  - Nasal congestion [Unknown]
  - Calcinosis [Unknown]
  - Constipation [Unknown]
  - Body temperature decreased [Unknown]
  - Bursitis [Unknown]
  - Blood pressure increased [Unknown]
  - Nasopharyngitis [Unknown]
  - Neoplasm [Unknown]
  - Haematuria [Unknown]

NARRATIVE: CASE EVENT DATE: 201512
